FAERS Safety Report 11682983 (Version 1)
Quarter: 2015Q4

REPORT INFORMATION
  Report Type: Spontaneous
  Country: AU (occurrence: AU)
  Receive Date: 20151029
  Receipt Date: 20151029
  Transmission Date: 20160304
  Serious: Yes (Hospitalization)
  Sender: FDA-Public Use
  Company Number: AU-FRESENIUS KABI-FK201505455

PATIENT
  Age: 67 Year
  Sex: Male

DRUGS (5)
  1. PROPOFOL FRESENIUS (NOT SPECIFIED) [Suspect]
     Active Substance: PROPOFOL
     Indication: ELECTROCONVULSIVE THERAPY
     Route: 042
     Dates: start: 20150921, end: 20150921
  2. VENLAFAXINE [Concomitant]
     Active Substance: VENLAFAXINE HYDROCHLORIDE
     Indication: DEPRESSION
  3. QUETIAPINE [Concomitant]
     Active Substance: QUETIAPINE
     Indication: AGITATION
  4. VENLAFAXINE [Concomitant]
     Active Substance: VENLAFAXINE HYDROCHLORIDE
  5. VITAMIN D [Suspect]
     Active Substance: CHOLECALCIFEROL

REACTIONS (2)
  - Peroneal nerve palsy [Recovered/Resolved with Sequelae]
  - Muscular weakness [Recovered/Resolved with Sequelae]

NARRATIVE: CASE EVENT DATE: 20150929
